FAERS Safety Report 5756074-9 (Version None)
Quarter: 2008Q2

REPORT INFORMATION
  Report Type: 
  Country: None (occurrence: None)
  Receive Date: 20080602
  Receipt Date: 20080506
  Transmission Date: 20081010
  Serious: No
  Sender: FDA-Public Use
  Company Number: US-BOEHRINGER INGELHEIM GMBH, GERMANY-2008-BP-07175BP

PATIENT
  Sex: Male

DRUGS (1)
  1. FLOMAX [Suspect]
     Dates: start: 20071101, end: 20071201

REACTIONS (3)
  - EJACULATION FAILURE [None]
  - LOSS OF LIBIDO [None]
  - SEXUAL DYSFUNCTION [None]
